FAERS Safety Report 8681548 (Version 2)
Quarter: 2012Q4

REPORT INFORMATION
  Report Type: 
  Country: JP (occurrence: JP)
  Receive Date: 20120725
  Receipt Date: 20120925
  Transmission Date: 20130627
  Serious: Yes (Disabling)
  Sender: FDA-Public Use
  Company Number: PHHY2012JP024014

PATIENT
  Age: 53 None
  Sex: Female

DRUGS (7)
  1. NEORAL [Suspect]
     Dosage: 75 mg in the morning and 50 mg in the evening
     Route: 048
     Dates: start: 20111101, end: 20111130
  2. LOCOID [Concomitant]
     Indication: TINEA INFECTION
     Route: 061
     Dates: start: 20120117
  3. VITAMIN C [Concomitant]
  4. RAMITECT [Concomitant]
     Indication: TINEA INFECTION
     Route: 048
     Dates: start: 20120117
  5. FULMETA [Concomitant]
     Indication: TINEA INFECTION
     Route: 061
     Dates: start: 20120117
  6. ALEROFF [Concomitant]
     Indication: TINEA INFECTION
     Route: 048
     Dates: start: 20120117
  7. PROTOPIC [Concomitant]
     Route: 061

REACTIONS (4)
  - Melanoderma [Recovered/Resolved]
  - Leukoderma [Unknown]
  - Rash macular [Recovering/Resolving]
  - Pruritus [Recovering/Resolving]
